FAERS Safety Report 6312062-5 (Version None)
Quarter: 2009Q3

REPORT INFORMATION
  Report Type: 
  Country: None (occurrence: None)
  Receive Date: 20090813
  Receipt Date: 20090813
  Transmission Date: 20100115
  Serious: Yes (Life-Threatening, Hospitalization)
  Sender: FDA-Public Use
  Company Number: None

PATIENT
  Age: 47 Year
  Sex: Female
  Weight: 72.5755 kg

DRUGS (2)
  1. NUVARING [Suspect]
     Indication: CONTRACEPTION
     Dosage: 1 RING EVERY 3 WEEKS VAG
     Route: 067
     Dates: start: 20080315, end: 20090628
  2. NUVARING [Suspect]
     Indication: MENOPAUSE
     Dosage: 1 RING EVERY 3 WEEKS VAG
     Route: 067
     Dates: start: 20080315, end: 20090628

REACTIONS (2)
  - DEEP VEIN THROMBOSIS [None]
  - PULMONARY EMBOLISM [None]
